FAERS Safety Report 4351481-3 (Version None)
Quarter: 2004Q2

REPORT INFORMATION
  Report Type: 
  Country: None (occurrence: None)
  Receive Date: 20040428
  Receipt Date: 20040412
  Transmission Date: 20050107
  Serious: Yes (Hospitalization, Other)
  Sender: FDA-Public Use
  Company Number: US_0404102077

PATIENT
  Sex: Male
  Weight: 132 kg

DRUGS (1)
  1. HUMULIN 70/30 [Suspect]
     Indication: DIABETES MELLITUS
     Dosage: 152 U DAY
     Dates: start: 20010101, end: 20040201

REACTIONS (9)
  - GANGRENE [None]
  - IMPAIRED HEALING [None]
  - LIMB INJURY [None]
  - LOCALISED INFECTION [None]
  - PAIN [None]
  - PURULENCE [None]
  - SKIN DISCOLOURATION [None]
  - THROMBOSIS [None]
  - TOE AMPUTATION [None]
